FAERS Safety Report 13074088 (Version 2)
Quarter: 2017Q1

REPORT INFORMATION
  Report Type: Spontaneous
  Country: CA (occurrence: CA)
  Receive Date: 20161229
  Receipt Date: 20170112
  Transmission Date: 20170428
  Serious: Yes (Other)
  Sender: FDA-Public Use
  Company Number: CA-CONCORDIA PHARMACEUTICALS INC.-E2B_00007954

PATIENT
  Age: 74 Year
  Sex: Female

DRUGS (8)
  1. PREDNISONE. [Concomitant]
     Active Substance: PREDNISONE
     Dates: start: 1964
  2. HYDROXYCHLOROQUINE [Suspect]
     Active Substance: HYDROXYCHLOROQUINE
     Indication: SYSTEMIC LUPUS ERYTHEMATOSUS
     Dosage: 400 MG/D FOR 6 D/WK SINCE 2002
     Route: 065
     Dates: start: 2002
  3. WARFARIN [Concomitant]
     Active Substance: WARFARIN
  4. AMLODIPINE [Concomitant]
     Active Substance: AMLODIPINE BESYLATE
  5. RAMIPRIL. [Concomitant]
     Active Substance: RAMIPRIL
  6. ATENOLOL. [Concomitant]
     Active Substance: ATENOLOL
  7. LEVOTHYROXINE. [Concomitant]
     Active Substance: LEVOTHYROXINE
  8. HYDROXYCHLOROQUINE [Suspect]
     Active Substance: HYDROXYCHLOROQUINE
     Route: 065
     Dates: end: 2014

REACTIONS (23)
  - Troponin T increased [Recovering/Resolving]
  - Chest discomfort [Recovering/Resolving]
  - Dyspnoea paroxysmal nocturnal [Recovering/Resolving]
  - Oedema peripheral [Recovering/Resolving]
  - Nuclear magnetic resonance imaging abnormal [Recovering/Resolving]
  - Electrocardiogram abnormal [Recovering/Resolving]
  - Bundle branch block left [Recovering/Resolving]
  - Ejection fraction decreased [Recovering/Resolving]
  - Hypertrophic cardiomyopathy [Recovering/Resolving]
  - Mitral valve incompetence [Recovered/Resolved]
  - Cardiac septal hypertrophy [Recovering/Resolving]
  - Biopsy heart abnormal [Recovering/Resolving]
  - Left ventricular dysfunction [Recovering/Resolving]
  - Dyspnoea exertional [Recovering/Resolving]
  - Left ventricular hypertrophy [Recovering/Resolving]
  - N-terminal prohormone brain natriuretic peptide increased [Recovering/Resolving]
  - Blood creatine phosphokinase [Recovering/Resolving]
  - Myocardial fibrosis [Recovering/Resolving]
  - Endocardial fibrosis [Recovering/Resolving]
  - Chest pain [Recovering/Resolving]
  - Cardiomegaly [Recovering/Resolving]
  - Right ventricular hypertrophy [Recovering/Resolving]
  - Left ventricular dysfunction [Recovering/Resolving]

NARRATIVE: CASE EVENT DATE: 2012
